FAERS Safety Report 4766701-0 (Version None)
Quarter: 2005Q3

REPORT INFORMATION
  Report Type: 
  Country: None (occurrence: None)
  Receive Date: 20050906
  Receipt Date: 20050819
  Transmission Date: 20060218
  Serious: Yes (Hospitalization)
  Sender: FDA-Public Use
  Company Number: WSDF 68

PATIENT
  Age: 12 Year
  Sex: Male
  Weight: 38.5557 kg

DRUGS (6)
  1. WINRHO SDF [Suspect]
     Indication: IDIOPATHIC THROMBOCYTOPENIC PURPURA
     Dosage: 50 UG/KG IV ONE DOSE
     Dates: end: 19980303
  2. METHYLPREDNISOLONE [Concomitant]
  3. DECADRON [Concomitant]
  4. VINCRISTINE [Concomitant]
  5. PLASMAPHERESIS [Concomitant]
  6. BLOOD AND PLASMA TRANSFUSIONS [Concomitant]

REACTIONS (27)
  - ACTIVATED PARTIAL THROMBOPLASTIN TIME PROLONGED [None]
  - ANAEMIA [None]
  - AUTOIMMUNE DISORDER [None]
  - BLOOD ALBUMIN DECREASED [None]
  - BLOOD PRESSURE DIASTOLIC DECREASED [None]
  - CONJUNCTIVAL HAEMORRHAGE [None]
  - DISSEMINATED INTRAVASCULAR COAGULATION [None]
  - DRUG INEFFECTIVE [None]
  - EXTRAVASCULAR HAEMOLYSIS [None]
  - GASTROINTESTINAL HAEMORRHAGE [None]
  - HAEMATURIA [None]
  - HAEMOGLOBINAEMIA [None]
  - HAEMOGLOBINURIA [None]
  - HAEMOLYTIC ANAEMIA [None]
  - HEPATIC FUNCTION ABNORMAL [None]
  - HEPATITIS [None]
  - HEPATOMEGALY [None]
  - HYPOALBUMINAEMIA [None]
  - HYPONATRAEMIA [None]
  - IDIOPATHIC THROMBOCYTOPENIC PURPURA [None]
  - LEUKOCYTOSIS [None]
  - PLATELET COUNT INCREASED [None]
  - RESPIRATORY RATE INCREASED [None]
  - RETINAL HAEMORRHAGE [None]
  - SPLEEN PALPABLE [None]
  - SPLENECTOMY [None]
  - THROMBOCYTOPENIA [None]
